FAERS Safety Report 18599429 (Version 1)
Quarter: 2020Q4

REPORT INFORMATION
  Report Type: Spontaneous
  Country: JP (occurrence: JP)
  Receive Date: 20201210
  Receipt Date: 20201210
  Transmission Date: 20210114
  Serious: Yes (Hospitalization)
  Sender: FDA-Public Use
  Company Number: JP-JNJFOC-20200521360

PATIENT
  Age: 82 Year
  Sex: Male
  Weight: 70 kg

DRUGS (5)
  1. ERLEADA [Suspect]
     Active Substance: APALUTAMIDE
     Indication: HORMONE-REFRACTORY PROSTATE CANCER
     Route: 048
     Dates: start: 20200205, end: 20200303
  2. DECADRON [Suspect]
     Active Substance: DEXAMETHASONE
     Dosage: DOSE UNKNOWN(DOSE REDUCED)
     Route: 065
     Dates: start: 202002, end: 202003
  3. DECADRON [Suspect]
     Active Substance: DEXAMETHASONE
     Dosage: DOSE UNKNOWN(DOSE INCREASED)
     Route: 065
     Dates: start: 202003
  4. LEUPLIN [Concomitant]
     Active Substance: LEUPROLIDE ACETATE
     Dosage: DOSE UNKNOWN
     Route: 065
  5. DECADRON [Suspect]
     Active Substance: DEXAMETHASONE
     Indication: PRODUCT USED FOR UNKNOWN INDICATION
     Dosage: DOSE UNKNOWN
     Route: 065
     Dates: end: 202002

REACTIONS (3)
  - Decreased appetite [Recovering/Resolving]
  - Malaise [Recovering/Resolving]
  - Oedema peripheral [Unknown]

NARRATIVE: CASE EVENT DATE: 2020
